FAERS Safety Report 7703774-7 (Version None)
Quarter: 2011Q3

REPORT INFORMATION
  Report Type: 
  Country: None (occurrence: None)
  Receive Date: 20110823
  Receipt Date: 20110811
  Transmission Date: 20111222
  Serious: Yes (Death)
  Sender: FDA-Public Use
  Company Number: US-JNJFOC-20110807094

PATIENT

DRUGS (2)
  1. INFLIXIMAB, RECOMBINANT [Suspect]
     Indication: GRAFT VERSUS HOST DISEASE
     Route: 042
  2. DACLIZUMAB [Suspect]
     Indication: GRAFT VERSUS HOST DISEASE
     Route: 065

REACTIONS (3)
  - DISEASE PROGRESSION [None]
  - INFECTION [None]
  - GRAFT VERSUS HOST DISEASE [None]
